FAERS Safety Report 13962163 (Version 2)
Quarter: 2017Q3

REPORT INFORMATION
  Report Type: Spontaneous
  Country: US (occurrence: US)
  Receive Date: 20170912
  Receipt Date: 20170927
  Transmission Date: 20171128
  Serious: No
  Sender: FDA-Public Use
  Company Number: US-009507513-1709USA005621

PATIENT
  Age: 16 Year
  Sex: Female

DRUGS (1)
  1. NEXPLANON [Suspect]
     Active Substance: ETONOGESTREL
     Indication: CONTRACEPTION
     Dosage: 1 DF, EVERY 3 YEARS
     Route: 059
     Dates: start: 20130602

REACTIONS (8)
  - Device difficult to use [Not Recovered/Not Resolved]
  - Anxiety [Unknown]
  - Migration of implanted drug [Not Recovered/Not Resolved]
  - Device deployment issue [Recovered/Resolved]
  - Complication associated with device [Unknown]
  - Implant site pain [Not Recovered/Not Resolved]
  - Incorrect drug administration duration [Unknown]
  - Ulcer [Unknown]

NARRATIVE: CASE EVENT DATE: 201306
